FAERS Safety Report 10495503 (Version 1)
Quarter: 2014Q3

REPORT INFORMATION
  Report Type: Spontaneous
  Country: US (occurrence: None)
  Receive Date: 20140815
  Receipt Date: 20140815
  Transmission Date: 20150326
  Serious: Yes (Other)
  Sender: FDA-Public Use
  Company Number: ADR-2013-01034

PATIENT
  Sex: Female

DRUGS (4)
  1. BACLOFEN INTRATHECAL [Suspect]
     Active Substance: BACLOFEN
     Indication: PAIN
  2. BUPIVACINE [Concomitant]
     Active Substance: BUPIVACAINE
  3. MORPHINE [Concomitant]
     Active Substance: MORPHINE
  4. FENTANYL. [Concomitant]
     Active Substance: FENTANYL

REACTIONS (5)
  - Dizziness [None]
  - Malaise [None]
  - Nausea [None]
  - Loss of consciousness [None]
  - Therapeutic response decreased [None]
